FAERS Safety Report 17886654 (Version 2)
Quarter: 2020Q3

REPORT INFORMATION
  Report Type: Report from Study
  Country: BE (occurrence: BE)
  Receive Date: 20200611
  Receipt Date: 20200615
  Transmission Date: 20201104
  Serious: Yes (Death)
  Sender: FDA-Public Use
  Company Number: NVSC2020BE162125

PATIENT
  Sex: Male

DRUGS (5)
  1. ACLASTA [Suspect]
     Active Substance: ZOLEDRONIC ACID
     Indication: OSTEOPOROSIS
     Dosage: 5 MG / 100 ML, ONCE/SINGLE (ONCE A YEAR)
     Route: 042
     Dates: start: 20150611
  2. ACLASTA [Suspect]
     Active Substance: ZOLEDRONIC ACID
     Dosage: 5 MG / 100 ML, ONCE/SINGLE (ONCE A YEAR)
     Route: 042
     Dates: start: 20190705
  3. ACLASTA [Suspect]
     Active Substance: ZOLEDRONIC ACID
     Dosage: 5 MG / 100 ML, ONCE/SINGLE (ONCE A YEAR)
     Route: 042
     Dates: start: 20160708
  4. ACLASTA [Suspect]
     Active Substance: ZOLEDRONIC ACID
     Dosage: 5 MG / 100 ML, ONCE/SINGLE (ONCE A YEAR)
     Route: 042
     Dates: start: 20170727
  5. ACLASTA [Suspect]
     Active Substance: ZOLEDRONIC ACID
     Dosage: 5 MG / 100 ML, ONCE/SINGLE (ONCE A YEAR)
     Route: 042
     Dates: start: 20180627

REACTIONS (1)
  - Death [Fatal]
